FAERS Safety Report 10660320 (Version 2)
Quarter: 2014Q4

REPORT INFORMATION
  Report Type: Spontaneous
  Country: US (occurrence: US)
  Receive Date: 20141217
  Receipt Date: 20141217
  Transmission Date: 20150529
  Serious: No
  Sender: FDA-Public Use
  Company Number: US-GLAXOSMITHKLINE-A1083108A

PATIENT

DRUGS (1)
  1. VOTRIENT [Suspect]
     Active Substance: PAZOPANIB HYDROCHLORIDE
     Indication: THYROID CANCER
     Route: 065
     Dates: start: 20140418

REACTIONS (5)
  - Frequent bowel movements [Unknown]
  - Blood pressure increased [Unknown]
  - Defaecation urgency [Unknown]
  - Nasal ulcer [Unknown]
  - Mouth ulceration [Unknown]
